FAERS Safety Report 11617095 (Version 1)
Quarter: 2015Q4

REPORT INFORMATION
  Report Type: Spontaneous
  Country: US (occurrence: US)
  Receive Date: 20151009
  Receipt Date: 20151009
  Transmission Date: 20160304
  Serious: Yes (Other)
  Sender: FDA-Public Use
  Company Number: US-JNJFOC-20151002165

PATIENT
  Sex: Female
  Weight: 106.14 kg

DRUGS (4)
  1. XARELTO [Suspect]
     Active Substance: RIVAROXABAN
     Indication: THROMBOSIS
     Route: 048
     Dates: start: 2015
  2. XARELTO [Suspect]
     Active Substance: RIVAROXABAN
     Indication: THROMBOSIS
     Route: 048
     Dates: start: 2015, end: 2015
  3. XARELTO [Suspect]
     Active Substance: RIVAROXABAN
     Indication: THROMBOSIS
     Route: 048
     Dates: start: 2015, end: 2015
  4. XARELTO [Suspect]
     Active Substance: RIVAROXABAN
     Indication: THROMBOSIS
     Dosage: FOR THREE WEEKS
     Route: 048
     Dates: start: 201508, end: 2015

REACTIONS (9)
  - Drug effect decreased [Recovered/Resolved]
  - Eructation [Not Recovered/Not Resolved]
  - Irritable bowel syndrome [Unknown]
  - Thrombosis [Unknown]
  - Incorrect dose administered [Unknown]
  - Flatulence [Not Recovered/Not Resolved]
  - Herbal interaction [Unknown]
  - Drug prescribing error [Recovered/Resolved]
  - Haemorrhoidal haemorrhage [Unknown]

NARRATIVE: CASE EVENT DATE: 2015
